FAERS Safety Report 24062401 (Version 1)
Quarter: 2024Q3

REPORT INFORMATION
  Report Type: Other
  Country: CN (occurrence: CN)
  Receive Date: 20240708
  Receipt Date: 20240708
  Transmission Date: 20241016
  Serious: Yes (Other)
  Sender: GE HEALTHCARE
  Company Number: CN-GE HEALTHCARE-2024CSU007415

PATIENT
  Age: 60 Year
  Sex: Male
  Weight: 75 kg

DRUGS (1)
  1. OMNIPAQUE [Suspect]
     Active Substance: IOHEXOL
     Indication: Angiogram cerebral
     Dosage: 200 ML, TOTAL
     Route: 013
     Dates: start: 20240627, end: 20240627

REACTIONS (4)
  - Apathy [Recovering/Resolving]
  - Contrast encephalopathy [Recovering/Resolving]
  - Amnesia [Recovering/Resolving]
  - Depressed level of consciousness [Recovering/Resolving]

NARRATIVE: CASE EVENT DATE: 20240627
